FAERS Safety Report 8911947 (Version 1)
Quarter: 2012Q4

REPORT INFORMATION
  Report Type: 
  Country: US (occurrence: US)
  Receive Date: 20121115
  Receipt Date: 20121115
  Transmission Date: 20130627
  Serious: Yes (Other)
  Sender: FDA-Public Use
  Company Number: US-GILEAD-2012-0063776

PATIENT
  Sex: Male

DRUGS (2)
  1. LETAIRIS [Suspect]
     Indication: PULMONARY ARTERIAL HYPERTENSION
     Dosage: 5 mg, QD
     Route: 048
     Dates: start: 20120430
  2. REVATIO [Concomitant]

REACTIONS (3)
  - Condition aggravated [Unknown]
  - Syncope [Unknown]
  - Dizziness [Unknown]
